FAERS Safety Report 5903837-2 (Version None)
Quarter: 2008Q3

REPORT INFORMATION
  Report Type: 
  Country: None (occurrence: None)
  Receive Date: 20080930
  Receipt Date: 20080704
  Transmission Date: 20090109
  Serious: Yes (Hospitalization)
  Sender: FDA-Public Use
  Company Number: GB-BAXTER-2008BH007064

PATIENT
  Age: 73 Year
  Sex: Female

DRUGS (17)
  1. GAMMAGARD LIQUID [Suspect]
     Indication: DRUG USE FOR UNKNOWN INDICATION
     Route: 065
     Dates: start: 20080624, end: 20080624
  2. ATORVASTATIN CALCIUM [Concomitant]
  3. CAPTOPRIL [Concomitant]
  4. CIPROFLOXACIN [Concomitant]
  5. COD-LIVER OIL [Concomitant]
  6. ESOMEPRAZOLE MAGNESIUM [Concomitant]
  7. FLOXACILLIN SODIUM [Concomitant]
  8. FRUSEMIDE [Concomitant]
  9. GABAPENTIN [Concomitant]
  10. LEVOTHYROXINE SODIUM [Concomitant]
  11. NABUMETONE [Concomitant]
  12. NEBIVOLOL HCL [Concomitant]
  13. ACETAMINOPHEN [Concomitant]
  14. PREDNISOLONE [Concomitant]
  15. RISEDRONIC ACID [Concomitant]
  16. TEMAZEPAM [Concomitant]
  17. WARFARIN SODIUM [Concomitant]

REACTIONS (3)
  - ACUTE PULMONARY OEDEMA [None]
  - ATRIAL FIBRILLATION [None]
  - ELECTROCARDIOGRAM CHANGE [None]
